FAERS Safety Report 4483763-9 (Version None)
Quarter: 2004Q4

REPORT INFORMATION
  Report Type: 
  Country: None (occurrence: None)
  Receive Date: 20041025
  Receipt Date: 20041013
  Transmission Date: 20050328
  Serious: Yes (Other)
  Sender: FDA-Public Use
  Company Number: JP-BRISTOL-MYERS SQUIBB COMPANY-12735783

PATIENT
  Age: 7 Year
  Sex: Female

DRUGS (6)
  1. LASTET [Suspect]
     Indication: PRIMITIVE NEUROECTODERMAL TUMOUR
     Route: 042
  2. ENDOXAN [Suspect]
     Indication: PRIMITIVE NEUROECTODERMAL TUMOUR
     Route: 042
  3. IFOMIDE [Suspect]
     Indication: PRIMITIVE NEUROECTODERMAL TUMOUR
     Route: 042
  4. ONCOVIN [Suspect]
     Indication: PRIMITIVE NEUROECTODERMAL TUMOUR
     Route: 042
  5. PIRARUBICIN [Suspect]
     Indication: PRIMITIVE NEUROECTODERMAL TUMOUR
     Route: 042
  6. RADIATION THERAPY [Concomitant]
     Dosage: 55.2 GY

REACTIONS (2)
  - BONE MARROW DEPRESSION [None]
  - CYSTITIS HAEMORRHAGIC [None]
